FAERS Safety Report 9421069 (Version 3)
Quarter: 2013Q3

REPORT INFORMATION
  Report Type: Spontaneous
  Country: JP (occurrence: JP)
  Receive Date: 20130725
  Receipt Date: 20130822
  Transmission Date: 20140515
  Serious: Yes (Life-Threatening, Other)
  Sender: FDA-Public Use
  Company Number: JP-UCBSA-086380

PATIENT
  Age: 40 Year
  Sex: Female
  Weight: 40 kg

DRUGS (10)
  1. CIMZIA [Suspect]
     Indication: RHEUMATOID ARTHRITIS
     Dosage: 200MG X 2 VIALS
     Route: 058
     Dates: start: 20130404, end: 20130404
  2. PREDNISOLONE [Concomitant]
     Indication: RHEUMATOID ARTHRITIS
     Route: 048
     Dates: start: 20110804
  3. PREDNISOLONE [Concomitant]
     Indication: RHEUMATOID ARTHRITIS
     Dosage: FOR 7 DAYS
  4. PROGRAF [Concomitant]
     Indication: RHEUMATOID ARTHRITIS
     Dosage: TOTAL DAILY DOSE-1MG
     Route: 048
     Dates: start: 2003
  5. METHOTREXATE [Concomitant]
     Indication: RHEUMATOID ARTHRITIS
     Dosage: DOSE: 4MGX2/WEEK
     Route: 048
     Dates: start: 20080417
  6. MUCOSTA [Concomitant]
     Indication: RHEUMATOID ARTHRITIS
     Dosage: TOTAL DAILY DOSE-300MG
     Route: 048
     Dates: start: 2008
  7. LORFENAMIN [Concomitant]
     Indication: RHEUMATOID ARTHRITIS
     Dosage: TOTAL DAILY DOSE- 180MG
     Route: 048
     Dates: start: 2008
  8. ALENDRONATE [Concomitant]
     Indication: OSTEOPOROSIS
     Dosage: UNSPECIFIED DOSE
     Route: 048
     Dates: start: 20100427
  9. OLMETEC [Concomitant]
     Indication: HYPERTENSION
     Dosage: TOTAL DAILY DOSE-20MG
     Route: 048
     Dates: start: 20130110
  10. METHYCOBAL [Concomitant]
     Indication: HYPOVITAMINOSIS
     Dosage: TOTAL DAILY DOSE-1500MCG
     Route: 048

REACTIONS (4)
  - Pyrexia [Recovered/Resolved]
  - Eyelid oedema [Recovered/Resolved]
  - Erythema [Recovered/Resolved]
  - Vomiting [Recovered/Resolved]
